FAERS Safety Report 21925846 (Version 1)
Quarter: 2023Q1

REPORT INFORMATION
  Report Type: Spontaneous
  Country: DE (occurrence: DE)
  Receive Date: 20230130
  Receipt Date: 20230130
  Transmission Date: 20230418
  Serious: Yes (Congenital Anomaly, Other)
  Sender: FDA-Public Use
  Company Number: DE-EMBRYOTOX-202206344

PATIENT
  Sex: Male
  Weight: 3.38 kg

DRUGS (5)
  1. PROMETHAZINE [Suspect]
     Active Substance: PROMETHAZINE HYDROCHLORIDE
     Indication: Foetal exposure during pregnancy
     Dosage: MATERNAL DOSE: 10 MG, QD
     Route: 064
  2. VENLAFAXINE HYDROCHLORIDE [Suspect]
     Active Substance: VENLAFAXINE HYDROCHLORIDE
     Indication: Foetal exposure during pregnancy
     Dosage: MATERNAL DOSE: 150 MG QD STARTED FROM 18 SEP 2021 TO 01 JUL 2022
     Route: 064
  3. REPEVAX [Concomitant]
     Active Substance: DIPHTHERIA AND TETANUS TOXOIDS AND ACELLULAR PERTUSSIS ADSORBED AND INACTIVATED POLIOVIRUS VACCINE
     Indication: Foetal exposure during pregnancy
     Dosage: MATERNAL DOSE: UNK RECEIVED  ON 12 MAY 2022
     Route: 064
  4. INFLUENZA VIRUS VACCINE [Concomitant]
     Active Substance: INFLUENZA VIRUS VACCINE
     Indication: Foetal exposure during pregnancy
     Dosage: MATERNAL DOSE: UNK RECEIVED ON 12 MAY 2022
     Route: 064
  5. DINOPROSTONE [Concomitant]
     Active Substance: DINOPROSTONE
     Indication: Foetal exposure during pregnancy
     Dosage: MATERNAL DOSE: UNK
     Route: 064

REACTIONS (3)
  - Congenital aortic valve stenosis [Unknown]
  - Ebstein^s anomaly [Unknown]
  - Foetal exposure during pregnancy [Unknown]
